FAERS Safety Report 19799025 (Version 1)
Quarter: 2021Q3

REPORT INFORMATION
  Report Type: Spontaneous
  Country: BR (occurrence: BR)
  Receive Date: 20210907
  Receipt Date: 20210907
  Transmission Date: 20211014
  Serious: Yes (Other)
  Sender: FDA-Public Use
  Company Number: BR-ANIPHARMA-2021-BR-000104

PATIENT
  Age: 36 Year
  Sex: Female

DRUGS (4)
  1. ANASTROZOLE. [Suspect]
     Active Substance: ANASTROZOLE
     Indication: HORMONE RECEPTOR POSITIVE BREAST CANCER
     Dosage: 1 MG DAILY
     Route: 048
     Dates: start: 202002
  2. ZOLEDRONIC ACID [Concomitant]
     Active Substance: ZOLEDRONIC ACID
     Route: 065
     Dates: start: 202002
  3. PALBOCICLIB [Concomitant]
     Active Substance: PALBOCICLIB
     Dosage: 125 MG DAILY
     Route: 065
     Dates: start: 202002
  4. GOSERELIN [Suspect]
     Active Substance: GOSERELIN
     Dosage: EVERY 28 DAYS
     Route: 058
     Dates: start: 202002

REACTIONS (2)
  - Ill-defined disorder [Unknown]
  - Neutropenia [Unknown]

NARRATIVE: CASE EVENT DATE: 202005
